FAERS Safety Report 18419158 (Version 1)
Quarter: 2020Q4

REPORT INFORMATION
  Report Type: Spontaneous
  Country: US (occurrence: US)
  Receive Date: 20201023
  Receipt Date: 20201023
  Transmission Date: 20210114
  Serious: No
  Sender: FDA-Public Use
  Company Number: None

PATIENT
  Age: 45 Year
  Sex: Female

DRUGS (1)
  1. BOTOX [Suspect]
     Active Substance: ONABOTULINUMTOXINA
     Dosage: ?          OTHER STRENGTH:200 UNIT;OTHER DOSE:200 UNITS;?
     Route: 030
     Dates: start: 202002

REACTIONS (4)
  - Feeling abnormal [None]
  - Drug ineffective [None]
  - Liquid product physical issue [None]
  - Eye disorder [None]

NARRATIVE: CASE EVENT DATE: 20200826
